FAERS Safety Report 6982317 (Version 4)
Quarter: 2013Q4

REPORT INFORMATION
  Report Type: Spontaneous
  Country: US (occurrence: US)
  Receive Date: 20090430
  Receipt Date: 20131129
  Transmission Date: 20140711
  Serious: Yes (Other)
  Sender: FDA-Public Use
  Company Number: US-ASTRAZENECA-2008UW03315

PATIENT
  Age: 55 Year
  Sex: Female

DRUGS (2)
  1. NEXIUM [Suspect]
     Route: 048
     Dates: start: 200712
  2. NEXIUM [Suspect]
     Route: 048

REACTIONS (9)
  - Intestinal polyp [Unknown]
  - Gastric disorder [Unknown]
  - Neck pain [Unknown]
  - Malaise [Unknown]
  - Abdominal discomfort [Unknown]
  - Malaise [Unknown]
  - Intentional drug misuse [Unknown]
  - Off label use [Unknown]
  - Drug dose omission [Unknown]
